FAERS Safety Report 9607050 (Version 1)
Quarter: 2013Q4

REPORT INFORMATION
  Report Type: Spontaneous
  Country: FR (occurrence: FR)
  Receive Date: 20131009
  Receipt Date: 20131009
  Transmission Date: 20140711
  Serious: Yes (Other)
  Sender: FDA-Public Use
  Company Number: FR-ROCHE-1285768

PATIENT
  Age: 48 Year
  Sex: Female

DRUGS (4)
  1. AVASTIN [Suspect]
     Indication: PRODUCT USED FOR UNKNOWN INDICATION
     Route: 042
     Dates: start: 20130808
  2. KEPPRA [Concomitant]
  3. INEXIUM [Concomitant]
  4. MUPHORAN [Concomitant]

REACTIONS (2)
  - Hepatitis [Recovered/Resolved]
  - Gamma-glutamyltransferase increased [Recovering/Resolving]
